FAERS Safety Report 12084359 (Version 1)
Quarter: 2016Q1

REPORT INFORMATION
  Report Type: Spontaneous
  Country: US (occurrence: None)
  Receive Date: 20160216
  Receipt Date: 20160216
  Transmission Date: 20160526
  Serious: Yes (Life-Threatening)
  Sender: FDA-Public Use
  Company Number: None

PATIENT
  Age: 62 Year
  Sex: Male
  Weight: 100.25 kg

DRUGS (6)
  1. WARFARIN 5MG [Suspect]
     Active Substance: WARFARIN
     Indication: PULMONARY EMBOLISM
     Route: 048
     Dates: start: 20130508, end: 20160206
  2. LOPRESSOR [Concomitant]
     Active Substance: METOPROLOL TARTRATE
  3. PHENYTOIN. [Concomitant]
     Active Substance: PHENYTOIN
  4. IBUPROFEN. [Concomitant]
     Active Substance: IBUPROFEN
  5. WARFARIN 5MG [Suspect]
     Active Substance: WARFARIN
     Indication: DEEP VEIN THROMBOSIS
     Route: 048
     Dates: start: 20130508, end: 20160206
  6. TYLENOL [Concomitant]
     Active Substance: ACETAMINOPHEN

REACTIONS (2)
  - Laceration [None]
  - Fall [None]

NARRATIVE: CASE EVENT DATE: 20160206
